FAERS Safety Report 5071626-X (Version None)
Quarter: 2006Q3

REPORT INFORMATION
  Report Type: 
  Country: None (occurrence: None)
  Receive Date: 20060803
  Receipt Date: 20060803
  Transmission Date: 20061208
  Serious: No
  Sender: FDA-Public Use
  Company Number: None

PATIENT
  Age: 31 Year
  Sex: Female
  Weight: 97.3 kg

DRUGS (2)
  1. CEFAZOLIN [Suspect]
     Indication: POSTOPERATIVE WOUND INFECTION
     Dosage: 1GM   Q8H   IV
     Route: 042
     Dates: start: 20060731
  2. CEFAZOLIN [Suspect]

REACTIONS (3)
  - DRUG HYPERSENSITIVITY [None]
  - GASTROINTESTINAL DISORDER [None]
  - PRURITUS [None]
